FAERS Safety Report 19862785 (Version 2)
Quarter: 2021Q3

REPORT INFORMATION
  Report Type: Report from Study
  Country: CA (occurrence: CA)
  Receive Date: 20210921
  Receipt Date: 20210925
  Transmission Date: 20211014
  Serious: Yes (Other)
  Sender: FDA-Public Use
  Company Number: CA-REGENERON PHARMACEUTICALS, INC.-2021-86714

PATIENT

DRUGS (1)
  1. EYLEA [Suspect]
     Active Substance: AFLIBERCEPT
     Indication: NEOVASCULAR AGE-RELATED MACULAR DEGENERATION
     Dosage: UNK; TOTAL NUMBER OF DOSES UNK; LAST DOSE UNK
     Route: 031

REACTIONS (6)
  - Glaucoma [Unknown]
  - Eye infection [Unknown]
  - Eye pain [Unknown]
  - Eye prosthesis insertion [Unknown]
  - Corneal abrasion [Unknown]
  - Blister [Unknown]
